FAERS Safety Report 5054508-9 (Version None)
Quarter: 2006Q2

REPORT INFORMATION
  Report Type: 
  Country: None (occurrence: None)
  Receive Date: 20060616
  Receipt Date: 20060417
  Transmission Date: 20061013
  Serious: Yes (Other)
  Sender: FDA-Public Use
  Company Number: 224202

PATIENT
  Age: 68 Year
  Sex: Female
  Weight: 59.9 kg

DRUGS (8)
  1. AVASTIN [Suspect]
     Indication: COLORECTAL CANCER METASTATIC
     Dosage: 325 MG, Q2W, INTRAVENOUS
     Route: 042
     Dates: start: 20050505, end: 20051206
  2. AVASTIN [Suspect]
     Indication: COLORECTAL CANCER METASTATIC
     Dosage: 325 MG, Q2W, INTRAVENOUS
     Route: 042
     Dates: start: 20060405
  3. OXALIPLATIN(OXALIPLATIN) [Suspect]
     Indication: COLORECTAL CANCER METASTATIC
  4. LEUCOVORIN CALCIUM [Suspect]
     Indication: COLORECTAL CANCER METASTATIC
  5. FLUOROURACIL [Suspect]
     Indication: COLORECTAL CANCER METASTATIC
  6. TOPROL-XL [Concomitant]
  7. PROTONIX [Concomitant]
  8. ASPIRIN [Concomitant]

REACTIONS (2)
  - NEOPLASM PROGRESSION [None]
  - NEUTROPENIA [None]
